FAERS Safety Report 15591724 (Version 1)
Quarter: 2018Q4

REPORT INFORMATION
  Report Type: Spontaneous
  Country: US (occurrence: US)
  Receive Date: 20181106
  Receipt Date: 20181106
  Transmission Date: 20190205
  Serious: No
  Sender: FDA-Public Use
  Company Number: US-PFIZER INC-2018442271

PATIENT
  Age: 53 Year
  Sex: Female
  Weight: 56.7 kg

DRUGS (2)
  1. GABAPENTIN. [Suspect]
     Active Substance: GABAPENTIN
     Dosage: 900 MG, 1X/DAY (SHE REDUCED HER DOSE TO JUST THREE CAPSULES AT NIGHTTIME BY MOUTH)
     Route: 048
     Dates: start: 2010, end: 2018
  2. GABAPENTIN. [Suspect]
     Active Substance: GABAPENTIN
     Indication: NEUROPATHY PERIPHERAL
     Dosage: 1200 MG, DAILY (ORDERED AS 300MG CAPSULES, ONE IN THE MORNING AND FOUR CAPSULES AT NIGHT)

REACTIONS (2)
  - Product use in unapproved indication [Unknown]
  - Dysphemia [Recovering/Resolving]

NARRATIVE: CASE EVENT DATE: 2016
